FAERS Safety Report 4442400-X (Version None)
Quarter: 2004Q3

REPORT INFORMATION
  Report Type: 
  Country: None (occurrence: None)
  Receive Date: 20040903
  Receipt Date: 20040706
  Transmission Date: 20050211
  Serious: Yes (Other)
  Sender: FDA-Public Use
  Company Number: 2004UW13881

PATIENT
  Age: 71 Year
  Sex: Female
  Weight: 90.7194 kg

DRUGS (3)
  1. CRESTOR [Suspect]
     Indication: BLOOD CHOLESTEROL INCREASED
     Dosage: 10 MG DAILY PO
     Route: 048
     Dates: start: 20030801
  2. MONOPRIL [Concomitant]
  3. NEXIUM [Concomitant]

REACTIONS (4)
  - DERMATITIS EXFOLIATIVE [None]
  - ERYTHEMA [None]
  - EYELID OEDEMA [None]
  - EYELIDS PRURITUS [None]
